FAERS Safety Report 13759526 (Version 2)
Quarter: 2018Q3

REPORT INFORMATION
  Report Type: Spontaneous
  Country: FR (occurrence: FR)
  Receive Date: 20170717
  Receipt Date: 20180926
  Transmission Date: 20181010
  Serious: Yes (Other)
  Sender: FDA-Public Use
  Company Number: FR-009507513-1707FRA003373

PATIENT
  Age: 15 Year
  Sex: Female

DRUGS (1)
  1. NEXPLANON [Suspect]
     Active Substance: ETONOGESTREL
     Dosage: 1 IMPLANT, UNK (IN THE RIGHT ARM)
     Route: 059
     Dates: start: 20170313

REACTIONS (7)
  - Menstruation irregular [Unknown]
  - Menstruation delayed [Unknown]
  - Menstrual disorder [Unknown]
  - Complication associated with device [Unknown]
  - Device dislocation [Unknown]
  - Abdominal distension [Unknown]
  - Implant site pain [Unknown]

NARRATIVE: CASE EVENT DATE: 20170327
